FAERS Safety Report 24955468 (Version 1)
Quarter: 2025Q1

REPORT INFORMATION
  Report Type: Spontaneous
  Country: US (occurrence: None)
  Receive Date: 20250210
  Receipt Date: 20250210
  Transmission Date: 20250408
  Serious: Yes (Hospitalization)
  Sender: FDA-CTU
  Company Number: None

PATIENT
  Age: 29 Year
  Sex: Female
  Weight: 81 kg

DRUGS (1)
  1. QELBREE [Suspect]
     Active Substance: VILOXAZINE HYDROCHLORIDE
     Indication: Attention deficit hyperactivity disorder
     Dosage: OTHER QUANTITY : 1 CAPSULE(S);?FREQUENCY : DAILY;?
     Route: 048
     Dates: start: 20250101, end: 20250122

REACTIONS (6)
  - Nausea [None]
  - Vomiting [None]
  - Tachycardia [None]
  - Anxiety [None]
  - Panic attack [None]
  - Withdrawal syndrome [None]

NARRATIVE: CASE EVENT DATE: 20250125
